FAERS Safety Report 9031661 (Version 3)
Quarter: 2013Q1

REPORT INFORMATION
  Report Type: Spontaneous
  Country: JP (occurrence: JP)
  Receive Date: 20130124
  Receipt Date: 20130201
  Transmission Date: 20140127
  Serious: Yes (Death, Hospitalization)
  Sender: FDA-Public Use
  Company Number: PHHY2013JP005924

PATIENT
  Age: 80 Year
  Sex: Female

DRUGS (3)
  1. EXELON PATCH [Suspect]
     Indication: DEMENTIA ALZHEIMER^S TYPE
     Dosage: 13.5 MG, DAILY
     Route: 062
     Dates: start: 20121019, end: 20130101
  2. MYSLEE [Concomitant]
     Route: 048
  3. PAXIL [Concomitant]
     Route: 048

REACTIONS (3)
  - Cardiac failure congestive [Fatal]
  - Pleural effusion [Not Recovered/Not Resolved]
  - Hyporeflexia [Not Recovered/Not Resolved]
